FAERS Safety Report 10545239 (Version 1)
Quarter: 2014Q4

REPORT INFORMATION
  Report Type: Spontaneous
  Country: US (occurrence: US)
  Receive Date: 20141027
  Receipt Date: 20141027
  Transmission Date: 20150529
  Serious: Yes (Other)
  Sender: FDA-Public Use
  Company Number: US-BAYER-2014-154557

PATIENT
  Age: 66 Year
  Sex: Female

DRUGS (3)
  1. HYDROXYCHLOROQUINE SULFATE. [Concomitant]
     Active Substance: HYDROXYCHLOROQUINE SULFATE
  2. ACETYLSALICYLIC ACID({=100 MG) [Suspect]
     Active Substance: ASPIRIN
  3. METHOTREXATE [Interacting]
     Active Substance: METHOTREXATE

REACTIONS (4)
  - Labelled drug-drug interaction medication error [None]
  - Drug interaction [None]
  - Skin erosion [None]
  - Pancytopenia [None]
